FAERS Safety Report 8580820-2 (Version None)
Quarter: 2012Q3

REPORT INFORMATION
  Report Type: 
  Country: None (occurrence: None)
  Receive Date: 20120809
  Receipt Date: 20120801
  Transmission Date: 20120928
  Serious: Yes (Other)
  Sender: FDA-Public Use
  Company Number: US-SP-2008-02968

PATIENT
  Sex: Female

DRUGS (7)
  1. IMOVAX RABIES I.D. [Suspect]
     Route: 065
     Dates: start: 20070827
  2. SYNTHROID [Concomitant]
     Indication: THYROID DISORDER
  3. IMOGAM RABIES-HT [Suspect]
     Indication: ANIMAL BITE
     Route: 065
     Dates: start: 20070820
  4. RABAVERT [Suspect]
     Indication: ACCIDENTAL EXPOSURE
     Route: 065
     Dates: start: 20070820
  5. IMOVAX RABIES I.D. [Suspect]
     Route: 065
     Dates: start: 20070917
  6. IMOVAX RABIES I.D. [Suspect]
     Indication: ACCIDENTAL EXPOSURE
     Route: 065
     Dates: start: 20070823
  7. IMOVAX RABIES I.D. [Suspect]
     Route: 065
     Dates: start: 20070903

REACTIONS (18)
  - MADAROSIS [None]
  - NIGHT SWEATS [None]
  - WEIGHT DECREASED [None]
  - NAIL BED INFLAMMATION [None]
  - DEPRESSION [None]
  - VITREOUS DETACHMENT [None]
  - TREMOR [None]
  - TACHYCARDIA [None]
  - DYSPHONIA [None]
  - ANXIETY [None]
  - NON-CARDIAC CHEST PAIN [None]
  - BLOOD IRON DECREASED [None]
  - RASH [None]
  - INSOMNIA [None]
  - GENERALISED ANXIETY DISORDER [None]
  - PHOTOPSIA [None]
  - SKIN ATROPHY [None]
  - TINNITUS [None]
